FAERS Safety Report 9954752 (Version 2)
Quarter: 2014Q1

REPORT INFORMATION
  Report Type: Spontaneous
  Country: US (occurrence: US)
  Receive Date: 20140304
  Receipt Date: 20140304
  Transmission Date: 20141002
  Serious: Yes (Hospitalization)
  Sender: FDA-Public Use
  Company Number: US-ABBVIE-13P-163-1083165-00

PATIENT
  Age: 22 Year
  Sex: Female
  Weight: 63.56 kg

DRUGS (12)
  1. HUMIRA [Suspect]
     Indication: ANKYLOSING SPONDYLITIS
     Dates: start: 200605, end: 200701
  2. HUMIRA [Suspect]
     Indication: RHEUMATOID ARTHRITIS
     Dates: start: 200711, end: 200801
  3. ENBREL [Suspect]
     Indication: ANKYLOSING SPONDYLITIS
  4. ENBREL [Suspect]
     Indication: RHEUMATOID ARTHRITIS
  5. ACTEMRA [Suspect]
     Indication: ANKYLOSING SPONDYLITIS
     Route: 042
  6. ACTEMRA [Suspect]
     Indication: RHEUMATOID ARTHRITIS
  7. FISH OIL [Concomitant]
     Indication: CARDIOVASCULAR EVENT PROPHYLAXIS
  8. TRIFLEX [Concomitant]
     Indication: SUPPLEMENTATION THERAPY
  9. MULTIVITAMIN [Concomitant]
     Indication: ROUTINE HEALTH MAINTENANCE
  10. CELEBREX [Concomitant]
     Indication: RHEUMATOID ARTHRITIS
  11. PROBIOTICS NOS [Concomitant]
     Indication: GASTRIC DISORDER
  12. PROBIOTICS NOS [Concomitant]
     Indication: PROPHYLAXIS

REACTIONS (7)
  - Pelvic inflammatory disease [Recovered/Resolved]
  - Alopecia [Recovered/Resolved]
  - Skin wound [Recovered/Resolved]
  - Nausea [Recovered/Resolved]
  - Vomiting [Recovered/Resolved]
  - Fatigue [Not Recovered/Not Resolved]
  - Arthralgia [Not Recovered/Not Resolved]
